FAERS Safety Report 14222433 (Version 2)
Quarter: 2017Q4

REPORT INFORMATION
  Report Type: Report from Study
  Country: CA (occurrence: CA)
  Receive Date: 20171124
  Receipt Date: 20171125
  Transmission Date: 20180321
  Serious: Yes (Death, Life-Threatening, Hospitalization, Other)
  Sender: FDA-Public Use
  Company Number: CA-AMGEN-CANSL2017155617

PATIENT
  Age: 70 Year
  Sex: Male
  Weight: 73.5 kg

DRUGS (2)
  1. KYPROLIS [Suspect]
     Active Substance: CARFILZOMIB
     Indication: PLASMA CELL MYELOMA
     Dosage: 50 MG, ON DAY 1, 2, 8, 9, 15, AND 16
     Route: 042
     Dates: start: 20170809, end: 2017
  2. KYPROLIS [Suspect]
     Active Substance: CARFILZOMIB
     Dosage: 50 MG, ON DAY 1, 2, 8, 9, 15, AND 16, OD X2 X3 WEEKS
     Route: 042
     Dates: start: 2017, end: 2017

REACTIONS (16)
  - Pyrexia [Not Recovered/Not Resolved]
  - Dyspnoea [Not Recovered/Not Resolved]
  - Pain [Not Recovered/Not Resolved]
  - Dry mouth [Recovered/Resolved]
  - Thirst [Unknown]
  - Diarrhoea [Unknown]
  - Cold sweat [Unknown]
  - Asthenia [Recovering/Resolving]
  - Appetite disorder [Recovering/Resolving]
  - Somnolence [Not Recovered/Not Resolved]
  - Malaise [Recovering/Resolving]
  - Blood pressure abnormal [Not Recovered/Not Resolved]
  - Fatigue [Recovering/Resolving]
  - Pallor [Unknown]
  - Pneumonia [Fatal]
  - Decreased immune responsiveness [Unknown]

NARRATIVE: CASE EVENT DATE: 2017
